FAERS Safety Report 9558970 (Version 2)
Quarter: 2013Q4

REPORT INFORMATION
  Report Type: Spontaneous
  Country: US (occurrence: US)
  Receive Date: 20130927
  Receipt Date: 20131121
  Transmission Date: 20140711
  Serious: Yes (Death, Hospitalization)
  Sender: FDA-Public Use
  Company Number: US-BIOGENIDEC-2013BI091034

PATIENT
  Age: 54 Year
  Sex: Male

DRUGS (4)
  1. TYSABRI [Suspect]
     Indication: MULTIPLE SCLEROSIS
     Route: 042
     Dates: start: 20120621, end: 20130207
  2. ASPIRIN [Concomitant]
  3. PAXIL [Concomitant]
  4. LISINOPRIL [Concomitant]

REACTIONS (5)
  - Death [Fatal]
  - Grand mal convulsion [Not Recovered/Not Resolved]
  - Frontotemporal dementia [Not Recovered/Not Resolved]
  - Leukocytosis [Recovered/Resolved]
  - Dysphagia [Not Recovered/Not Resolved]
